FAERS Safety Report 6167730-5 (Version None)
Quarter: 2009Q2

REPORT INFORMATION
  Report Type: 
  Country: None (occurrence: None)
  Receive Date: 20090427
  Receipt Date: 20090420
  Transmission Date: 20091009
  Serious: Yes (Disabling, Other)
  Sender: FDA-Public Use
  Company Number: CA-ASTRAZENECA-2009UW09578

PATIENT
  Age: 62 Year
  Sex: Female

DRUGS (6)
  1. ARIMIDEX [Suspect]
     Indication: BREAST CANCER
     Route: 048
     Dates: start: 20080801
  2. INDAPAMIDE [Concomitant]
  3. ENALAPRIL [Concomitant]
  4. PRAVASTATIN [Concomitant]
  5. ATENOLOL [Concomitant]
     Route: 048
  6. CALCIUM WITH VITAMIN D [Concomitant]

REACTIONS (2)
  - BONE EROSION [None]
  - DENTAL DISCOMFORT [None]
